FAERS Safety Report 8049736-4 (Version None)
Quarter: 2012Q1

REPORT INFORMATION
  Report Type: 
  Country: None (occurrence: None)
  Receive Date: 20120117
  Receipt Date: 20120110
  Transmission Date: 20120608
  Serious: Yes (Hospitalization)
  Sender: FDA-Public Use
  Company Number: NL-GLAXOSMITHKLINE-B0775743A

PATIENT
  Sex: Female
  Weight: 57 kg

DRUGS (3)
  1. COVERAM [Suspect]
     Indication: HYPERTENSION
     Route: 048
     Dates: start: 20111207, end: 20111219
  2. PROPAFENONE HCL [Suspect]
     Indication: ARRHYTHMIA
     Dosage: 450MG THREE TIMES PER DAY
     Route: 048
     Dates: start: 20110101, end: 20111212
  3. CARBASALATE CALCIUM [Concomitant]
     Dosage: 1MG PER DAY

REACTIONS (17)
  - DECREASED APPETITE [None]
  - MUSCLE SPASMS [None]
  - MUSCLE DISORDER [None]
  - CARDIOVASCULAR DISORDER [None]
  - ANGINA PECTORIS [None]
  - CHILLS [None]
  - ARTHRALGIA [None]
  - DYSPEPSIA [None]
  - FATIGUE [None]
  - CONSTIPATION [None]
  - CHEST PAIN [None]
  - AGITATION [None]
  - ABDOMINAL PAIN [None]
  - DRUG INTERACTION [None]
  - HEART RATE IRREGULAR [None]
  - INSOMNIA [None]
  - MYALGIA [None]
